FAERS Safety Report 4486090-9 (Version None)
Quarter: 2004Q4

REPORT INFORMATION
  Report Type: 
  Country: None (occurrence: None)
  Receive Date: 20041026
  Receipt Date: 20040825
  Transmission Date: 20050328
  Serious: Yes (Hospitalization)
  Sender: FDA-Public Use
  Company Number: FR-MERCK-0408FRA00052

PATIENT
  Age: 77 Year
  Sex: Male

DRUGS (7)
  1. FOSAMAX [Suspect]
     Indication: OSTEOPOROSIS PROPHYLAXIS
     Route: 048
     Dates: start: 20040805
  2. DAPSONE [Concomitant]
     Indication: CUTANEOUS VASCULITIS
     Route: 048
     Dates: end: 20040804
  3. PREDNISONE [Concomitant]
     Indication: CUTANEOUS VASCULITIS
     Route: 048
     Dates: start: 20040805
  4. METOPROLOL TARTRATE [Concomitant]
     Route: 048
  5. ASPIRIN LYSINE [Concomitant]
     Route: 048
  6. SIMVASTATIN [Concomitant]
     Route: 048
  7. ANTHOCYANINS (UNSPECIFIED) [Concomitant]
     Route: 048

REACTIONS (2)
  - ABDOMINAL PAIN [None]
  - CRYOGLOBULINAEMIA [None]
